FAERS Safety Report 24644917 (Version 1)
Quarter: 2024Q4

REPORT INFORMATION
  Report Type: Report from Study
  Country: US (occurrence: US)
  Receive Date: 20241121
  Receipt Date: 20241121
  Transmission Date: 20250114
  Serious: Yes (Hospitalization)
  Sender: JAZZ
  Company Number: US-JAZZ PHARMACEUTICALS-2024-US-021459

PATIENT
  Sex: Female

DRUGS (1)
  1. EPIDIOLEX [Suspect]
     Active Substance: CANNABIDIOL
     Indication: Idiopathic generalised epilepsy
     Dosage: 3 MILLILITER, BID
     Route: 048
     Dates: start: 20240722

REACTIONS (3)
  - Hospitalisation [Unknown]
  - Off label use [Unknown]
  - Product dose omission issue [Unknown]
